FAERS Safety Report 23080375 (Version 10)
Quarter: 2025Q3

REPORT INFORMATION
  Report Type: Spontaneous
  Country: JP (occurrence: JP)
  Receive Date: 20231018
  Receipt Date: 20250723
  Transmission Date: 20251021
  Serious: Yes (Death, Life-Threatening, Hospitalization, Disabling, Other)
  Sender: ALEXION PHARMACEUTICALS
  Company Number: 2023A233614

PATIENT
  Age: 72 Year
  Sex: Male
  Weight: 55 kg

DRUGS (14)
  1. IMFINZI [Suspect]
     Active Substance: DURVALUMAB
     Indication: Bile duct cancer
     Dosage: 1500 MILLIGRAM, Q3W
     Dates: start: 20230510, end: 20230620
  2. IMFINZI [Suspect]
     Active Substance: DURVALUMAB
     Route: 065
  3. ADRENAL [Suspect]
     Active Substance: EPINEPHRINE
     Indication: Immune-mediated myocarditis
     Route: 065
     Dates: start: 20230622, end: 20230810
  4. TACROLIMUS [Suspect]
     Active Substance: TACROLIMUS
     Indication: Immune-mediated myocarditis
     Route: 065
     Dates: start: 20230622, end: 20230810
  5. CISPLATIN [Concomitant]
     Active Substance: CISPLATIN
     Indication: Bile duct cancer
  6. CISPLATIN [Concomitant]
     Active Substance: CISPLATIN
     Dates: start: 20230510, end: 20230531
  7. GEMCITABINE HYDROCHLORIDE [Concomitant]
     Active Substance: GEMCITABINE HYDROCHLORIDE
     Indication: Bile duct cancer
  8. GEMCITABINE HYDROCHLORIDE [Concomitant]
     Active Substance: GEMCITABINE HYDROCHLORIDE
     Indication: Bile duct cancer
     Dates: start: 20230510, end: 20230531
  9. PALONOSETRON [Concomitant]
     Active Substance: PALONOSETRON
     Route: 065
  10. DEXAMETHASONE SODIUM PHOSPHATE [Concomitant]
     Active Substance: DEXAMETHASONE SODIUM PHOSPHATE
     Route: 065
  11. MANNITOL [Concomitant]
     Active Substance: MANNITOL
     Route: 065
  12. SOLDEM 3A [Concomitant]
     Active Substance: CARBOHYDRATES\POTASSIUM CHLORIDE\SODIUM CHLORIDE\SODIUM LACTATE
     Dosage: UNK, Q3W
     Route: 065
     Dates: start: 20230510
  13. URSODIOL [Concomitant]
     Active Substance: URSODIOL
     Route: 065
  14. ESOMEPRAZOLE [Concomitant]
     Active Substance: ESOMEPRAZOLE
     Route: 065

REACTIONS (11)
  - Immune-mediated myocarditis [Recovered/Resolved with Sequelae]
  - Tachycardia [Recovering/Resolving]
  - Colostomy infection [Not Recovered/Not Resolved]
  - Impaired healing [Not Recovered/Not Resolved]
  - Cardio-respiratory arrest [Recovered/Resolved]
  - Intestinal ischaemia [Recovered/Resolved with Sequelae]
  - Necrotising fasciitis [Fatal]
  - Anal infection [Not Recovered/Not Resolved]
  - Dyspnoea [Unknown]
  - Infection [Unknown]
  - Cardiac failure [Unknown]

NARRATIVE: CASE EVENT DATE: 20230621
